FAERS Safety Report 19440331 (Version 1)
Quarter: 2021Q2

REPORT INFORMATION
  Report Type: Other
  Country: CA (occurrence: CA)
  Receive Date: 20210621
  Receipt Date: 20210621
  Transmission Date: 20210717
  Serious: Yes (Other)
  Sender: FDA-Public Use
  Company Number: CA-CELLTRION INC.-2021CA008082

PATIENT

DRUGS (8)
  1. HYALURONATE SODIUM [Concomitant]
     Active Substance: HYALURONATE SODIUM
     Indication: DRY EYE
  2. MYCOPHENOLATE MOFETIL. [Suspect]
     Active Substance: MYCOPHENOLATE MOFETIL
     Indication: SJOGREN^S SYNDROME
     Dosage: 1.5 MG, 2 EVERY 1 DAYS
     Route: 048
  3. HYDROXYCHLOROQUINE SULFATE. [Concomitant]
     Active Substance: HYDROXYCHLOROQUINE SULFATE
     Dosage: 300 MG, 1 EVERY 1 DAYS
     Route: 048
  4. RITUXIMAB (UNKNOWN) [Suspect]
     Active Substance: RITUXIMAB
     Indication: SCLERITIS
  5. DOXYCYCLINE. [Concomitant]
     Active Substance: DOXYCYCLINE
     Dosage: 200 MG, 1 EVERY 1 DAYS
     Route: 048
  6. PREDNISONE. [Concomitant]
     Active Substance: PREDNISONE
     Dosage: 10 MG
     Route: 065
  7. RITUXIMAB (UNKNOWN) [Suspect]
     Active Substance: RITUXIMAB
     Indication: SJOGREN^S SYNDROME
     Dosage: 1000 MG
     Route: 042
  8. MYCOPHENOLATE MOFETIL. [Suspect]
     Active Substance: MYCOPHENOLATE MOFETIL
     Indication: SCLERITIS

REACTIONS (7)
  - Gastric disorder [Unknown]
  - Off label use [Unknown]
  - Malaise [Unknown]
  - Blood pressure systolic abnormal [Unknown]
  - Dysphagia [Unknown]
  - Hypotension [Unknown]
  - Syncope [Unknown]
